FAERS Safety Report 5568129-2 (Version None)
Quarter: 2007Q4

REPORT INFORMATION
  Report Type: 
  Country: None (occurrence: None)
  Receive Date: 20071220
  Receipt Date: 20071211
  Transmission Date: 20080405
  Serious: Yes (Other)
  Sender: FDA-Public Use
  Company Number: US-TYCO HEALTHCARE/MALLINCKRODT-T200701562

PATIENT

DRUGS (6)
  1. OPTIMARK [Suspect]
     Dosage: UNK, SINGLE
     Dates: start: 20010907, end: 20010907
  2. OMNISCAN [Suspect]
     Dosage: UNK, SINGLE
     Dates: start: 20010910, end: 20010910
  3. OMNISCAN [Suspect]
     Dosage: UNK, SINGLE
     Dates: start: 20010918, end: 20010918
  4. OMNISCAN [Suspect]
     Dosage: UNK, SINGLE
     Dates: start: 20010926, end: 20010926
  5. OMNISCAN [Suspect]
     Dosage: UNK, SINGLE
     Dates: start: 20010927, end: 20010927
  6. OMNISCAN [Suspect]
     Dosage: UNK, SINGLE
     Dates: start: 20020227

REACTIONS (1)
  - NEPHROGENIC SYSTEMIC FIBROSIS [None]
